FAERS Safety Report 9378603 (Version 1)
Quarter: 2013Q2

REPORT INFORMATION
  Report Type: Spontaneous
  Country: GB (occurrence: None)
  Receive Date: 20130626
  Receipt Date: 20130626
  Transmission Date: 20140414
  Serious: Yes (Hospitalization)
  Sender: FDA-Public Use
  Company Number: PRAN20130003

PATIENT
  Age: 21 Year
  Sex: Male

DRUGS (1)
  1. PROPRANOLOL HCL [Suspect]
     Indication: PRODUCT USED FOR UNKNOWN INDICATION
     Route: 048

REACTIONS (4)
  - Grand mal convulsion [None]
  - Respiratory arrest [None]
  - Tachycardia [None]
  - Overdose [None]
